FAERS Safety Report 5340444-7 (Version None)
Quarter: 2007Q2

REPORT INFORMATION
  Report Type: 
  Country: None (occurrence: None)
  Receive Date: 20070531
  Receipt Date: 20070102
  Transmission Date: 20071010
  Serious: Yes (Life-Threatening, Hospitalization)
  Sender: FDA-Public Use
  Company Number: CA-JNJFOC-20060704815

PATIENT
  Sex: Male
  Weight: 95 kg

DRUGS (10)
  1. DURAGESIC-100 [Suspect]
     Route: 062
  2. DURAGESIC-100 [Suspect]
     Route: 062
  3. DURAGESIC-100 [Suspect]
     Indication: PAIN
     Route: 062
  4. BIAXIN [Interacting]
     Indication: PNEUMONIA
     Route: 048
  5. CORDARONE [Interacting]
     Indication: ATRIAL FIBRILLATION
     Route: 065
  6. ZYPREXA [Suspect]
     Indication: DRUG USE FOR UNKNOWN INDICATION
     Route: 065
  7. EFFEXOR XR [Concomitant]
     Route: 065
  8. NOZINAN [Concomitant]
     Route: 065
  9. LOXAPAC [Concomitant]
     Route: 065
  10. MONOCOR [Concomitant]
     Route: 065

REACTIONS (6)
  - CONVULSION [None]
  - DRUG INTERACTION [None]
  - MIOSIS [None]
  - RESPIRATORY DEPRESSION [None]
  - SOMNOLENCE [None]
  - TORSADE DE POINTES [None]
